FAERS Safety Report 12765082 (Version 2)
Quarter: 2016Q4

REPORT INFORMATION
  Report Type: Report from Study
  Country: AR (occurrence: AR)
  Receive Date: 20160921
  Receipt Date: 20161016
  Transmission Date: 20170207
  Serious: Yes (Other)
  Sender: FDA-Public Use
  Company Number: AR-BRISTOL-MYERS SQUIBB COMPANY-BMS-2016-075842

PATIENT
  Age: 72 Year
  Sex: Female

DRUGS (2)
  1. NIVOLUMAB [Suspect]
     Active Substance: NIVOLUMAB
     Indication: PRODUCT USED FOR UNKNOWN INDICATION
     Dosage: 100 MG, Q2MO
     Route: 042
     Dates: start: 20160905
  2. NIVOLUMAB [Suspect]
     Active Substance: NIVOLUMAB
     Dosage: 140 MG, Q2MO
     Route: 042
     Dates: start: 20160905

REACTIONS (6)
  - Fatigue [Unknown]
  - Increased bronchial secretion [Unknown]
  - Nervousness [Recovering/Resolving]
  - Insomnia [Recovering/Resolving]
  - Bronchiectasis [Unknown]
  - Somnolence [Unknown]

NARRATIVE: CASE EVENT DATE: 20160905
